FAERS Safety Report 9010890 (Version 1)
Quarter: 2013Q1

REPORT INFORMATION
  Report Type: Spontaneous
  Country: GB (occurrence: GB)
  Receive Date: 20130109
  Receipt Date: 20130109
  Transmission Date: 20140127
  Serious: Yes (Disabling)
  Sender: FDA-Public Use
  Company Number: GB-TEVA-378862ISR

PATIENT
  Sex: Female
  Weight: 60 kg

DRUGS (6)
  1. AMLODIPINE [Suspect]
     Indication: HYPERTENSION
     Dosage: 10 MILLIGRAM DAILY;
     Route: 048
     Dates: start: 20121204, end: 20121213
  2. SYMBICORT [Concomitant]
     Dosage: 2 DOSAGE FORMS DAILY; LONG TERM
  3. CALCICHEW [Concomitant]
     Dosage: 2 DOSAGE FORMS DAILY; LONG TERM
  4. LIPITOR [Concomitant]
     Dosage: 20 MILLIGRAM DAILY; AT NIGHT
  5. AZATHIOPRINE [Concomitant]
     Dosage: 50 MILLIGRAM DAILY; LONG TERM
  6. OMEPRAZOLE [Concomitant]
     Dosage: 40 MILLIGRAM DAILY; LONG TERM

REACTIONS (2)
  - Confusional state [Recovering/Resolving]
  - Memory impairment [Recovering/Resolving]
